FAERS Safety Report 17330606 (Version 1)
Quarter: 2020Q1

REPORT INFORMATION
  Report Type: Spontaneous
  Country: US (occurrence: US)
  Receive Date: 20200127
  Receipt Date: 20200127
  Transmission Date: 20200409
  Serious: No
  Sender: FDA-Public Use
  Company Number: US-GALDERMA-US19036738

PATIENT
  Sex: Female

DRUGS (2)
  1. DIFFERIN GEL [Suspect]
     Active Substance: ADAPALENE
     Indication: ACNE
     Dosage: 0.1%
     Route: 061
     Dates: start: 2019
  2. BENZOYL PEROXIDE. [Concomitant]
     Active Substance: BENZOYL PEROXIDE
     Indication: ACNE
     Dosage: 2.5%
     Route: 061

REACTIONS (1)
  - Drug ineffective [Unknown]

NARRATIVE: CASE EVENT DATE: 2019
